FAERS Safety Report 23189151 (Version 1)
Quarter: 2023Q4

REPORT INFORMATION
  Report Type: Spontaneous
  Country: US (occurrence: US)
  Receive Date: 20231115
  Receipt Date: 20231115
  Transmission Date: 20240109
  Serious: No
  Sender: FDA-Public Use
  Company Number: US-NOVOPROD-1048328

PATIENT
  Age: 58 Year
  Sex: Female

DRUGS (1)
  1. NOVOLOG MIX 70/30 [Suspect]
     Active Substance: INSULIN ASPART
     Indication: Type 1 diabetes mellitus
     Dosage: UNK
     Route: 058
     Dates: start: 20230316, end: 20230320

REACTIONS (8)
  - Eye swelling [Unknown]
  - Dysphagia [Unknown]
  - Dyspnoea [Unknown]
  - Condition aggravated [Unknown]
  - Headache [Not Recovered/Not Resolved]
  - Hypersensitivity [Not Recovered/Not Resolved]
  - Glycosylated haemoglobin increased [Unknown]
  - Drug ineffective [Not Recovered/Not Resolved]

NARRATIVE: CASE EVENT DATE: 20230301
